FAERS Safety Report 7116023-8 (Version None)
Quarter: 2010Q4

REPORT INFORMATION
  Report Type: 
  Country: None (occurrence: None)
  Receive Date: 20101122
  Receipt Date: 20101112
  Transmission Date: 20110411
  Serious: Yes (Other)
  Sender: FDA-Public Use
  Company Number: BR-ROCHE-730466

PATIENT
  Sex: Female

DRUGS (4)
  1. RIVOTRIL [Suspect]
     Route: 048
     Dates: end: 20090101
  2. RIVOTRIL [Suspect]
     Route: 048
  3. DORMONID (ORAL) [Suspect]
     Indication: INSOMNIA
     Route: 048
     Dates: start: 20101109
  4. DONAREN [Suspect]
     Indication: DEPRESSION
     Dosage: DRUG NAME REPORTED AS ^DONAREN RETARD^
     Route: 065

REACTIONS (5)
  - AGITATION [None]
  - DELIRIUM [None]
  - DRUG INEFFECTIVE [None]
  - PAIN [None]
  - TREATMENT NONCOMPLIANCE [None]
